FAERS Safety Report 7509003-1 (Version None)
Quarter: 2011Q2

REPORT INFORMATION
  Report Type: 
  Country: None (occurrence: None)
  Receive Date: 20110519
  Receipt Date: 20110504
  Transmission Date: 20111010
  Serious: Yes (Hospitalization)
  Sender: FDA-Public Use
  Company Number: 2011SP007532

PATIENT
  Age: 20 Year
  Sex: Female
  Weight: 50 kg

DRUGS (6)
  1. GASMOTIN [Concomitant]
  2. GLIATILIN [Concomitant]
  3. DEPAKENE [Concomitant]
  4. TEMOZOLOMIDE [Suspect]
     Indication: GLIOBLASTOMA MULTIFORME
     Dosage: 100 MG; PO, 240 MG;
     Route: 048
     Dates: start: 20100223, end: 20100607
  5. TEMOZOLOMIDE [Suspect]
     Indication: GLIOBLASTOMA MULTIFORME
     Dosage: 100 MG; PO, 240 MG;
     Route: 048
     Dates: start: 20100101
  6. ZOFRAN [Concomitant]

REACTIONS (1)
  - METASTASES TO SPINE [None]
